FAERS Safety Report 17113216 (Version 3)
Quarter: 2020Q1

REPORT INFORMATION
  Report Type: Report from Study
  Country: None (occurrence: US)
  Receive Date: 20191204
  Receipt Date: 20200220
  Transmission Date: 20200409
  Serious: Yes (Hospitalization, Other)
  Sender: FDA-Public Use
  Company Number: US-ABBVIE-19K-163-3173567-00

PATIENT
  Sex: Male
  Weight: 81.72 kg

DRUGS (2)
  1. HUMIRA [Suspect]
     Active Substance: ADALIMUMAB
     Indication: PSORIASIS
     Route: 058
  2. SULFAMETH/TRIMETH [Concomitant]
     Active Substance: SULFAMETHOXAZOLE\TRIMETHOPRIM
     Indication: PRODUCT USED FOR UNKNOWN INDICATION

REACTIONS (10)
  - Calculus bladder [Unknown]
  - Stress [Unknown]
  - Procedural pain [Unknown]
  - Infection [Unknown]
  - Bladder spasm [Unknown]
  - Psoriasis [Unknown]
  - Post procedural infection [Recovered/Resolved]
  - Immunodeficiency [Unknown]
  - Device issue [Unknown]
  - Prostatic disorder [Unknown]

NARRATIVE: CASE EVENT DATE: 2019
